FAERS Safety Report 15375492 (Version 7)
Quarter: 2019Q1

REPORT INFORMATION
  Report Type: Report from Study
  Country: US (occurrence: US)
  Receive Date: 20180912
  Receipt Date: 20190304
  Transmission Date: 20190417
  Serious: Yes (Other)
  Sender: FDA-Public Use
  Company Number: US-PFIZER INC-2018347152

PATIENT
  Age: 60 Year
  Sex: Female

DRUGS (6)
  1. FASLODEX [Suspect]
     Active Substance: FULVESTRANT
     Dosage: UNK, MONTHLY
  2. IBRANCE [Suspect]
     Active Substance: PALBOCICLIB
     Dosage: 100 MG, CYCLIC (DAILY FOR 21 DAYS AND OFF 7 DAYS 21 DAYS AND OFF 7 DAYS WITH FASLODEX + XGEVA INJ.)
     Route: 048
     Dates: start: 20180923
  3. XGEVA [Concomitant]
     Active Substance: DENOSUMAB
     Dosage: UNK
  4. ZOMETA [Concomitant]
     Active Substance: ZOLEDRONIC ACID
     Dosage: UNK
  5. IBRANCE [Suspect]
     Active Substance: PALBOCICLIB
     Indication: BREAST CANCER
     Dosage: 125 MG, CYCLIC (125 MG DAILY FOR 21 DAYS AND OFF 7 DAYS WITH FASLODEX INJECTIONS)
     Route: 048
     Dates: start: 20180812, end: 20180909
  6. IBRANCE [Suspect]
     Active Substance: PALBOCICLIB
     Dosage: 100 MG, CYCLIC(FOR 21 DAYS AND OFF 7 DAYS)
     Route: 048
     Dates: start: 20190120

REACTIONS (9)
  - Vulvovaginal dryness [Unknown]
  - Fatigue [Not Recovered/Not Resolved]
  - Vulvovaginal pruritus [Unknown]
  - Nerve compression [Unknown]
  - Headache [Unknown]
  - Bone marrow failure [Not Recovered/Not Resolved]
  - Asthenia [Unknown]
  - Alopecia [Unknown]
  - Dry skin [Not Recovered/Not Resolved]

NARRATIVE: CASE EVENT DATE: 2018
